FAERS Safety Report 9298015 (Version 2)
Quarter: 2013Q2

REPORT INFORMATION
  Report Type: Spontaneous
  Country: US (occurrence: US)
  Receive Date: 20130520
  Receipt Date: 20130605
  Transmission Date: 20140414
  Serious: No
  Sender: FDA-Public Use
  Company Number: US-VERTEX PHARMACEUTICALS INC-2013-006115

PATIENT
  Age: 56 Year
  Sex: Male

DRUGS (14)
  1. INCIVEK [Suspect]
     Indication: HEPATITIS C
     Dosage: 750 MG, TID
     Route: 048
     Dates: start: 20130511, end: 201305
  2. RIBAVIRIN [Suspect]
     Indication: HEPATITIS C
     Dosage: 3 DF, BID
     Route: 048
     Dates: start: 20130511, end: 201305
  3. PEGASYS [Suspect]
     Indication: HEPATITIS C
     Dosage: 180 ?G, QW
     Route: 058
     Dates: start: 20130510, end: 201305
  4. METHADONE [Concomitant]
     Dosage: 20 MG, TID
  5. MECLIZINE [Concomitant]
     Dosage: 25 MG, BID
  6. SPIRONOLACTONE [Concomitant]
     Dosage: 100 MG, QD
  7. HCT [Concomitant]
     Dosage: 37.5 / 25 MG DAILY
  8. LASIX [Concomitant]
     Dosage: 20 MG, BID
  9. FLOMAX [Concomitant]
  10. VITAMIN D [Concomitant]
     Dosage: UNK, QW
  11. VITAMIN A [Concomitant]
     Dosage: UNK, QOD
  12. FUROSEMIDE [Concomitant]
  13. ALDACTONE [Concomitant]
  14. TRIAMTERENE/HCTZ [Concomitant]

REACTIONS (1)
  - Muscle spasms [Recovered/Resolved]
